FAERS Safety Report 23527351 (Version 1)
Quarter: 2024Q1

REPORT INFORMATION
  Report Type: Spontaneous
  Country: US (occurrence: US)
  Receive Date: 20240215
  Receipt Date: 20240215
  Transmission Date: 20240410
  Serious: No
  Sender: FDA-Public Use
  Company Number: US-ALKERMES INC.-ALK-2024-000039

PATIENT
  Sex: Female
  Weight: 121.5 kg

DRUGS (1)
  1. VIVITROL [Suspect]
     Active Substance: NALTREXONE
     Indication: Substance abuse
     Dosage: 380 MILLIGRAM, Q4WK
     Route: 030
     Dates: start: 20170723

REACTIONS (1)
  - Off label use [Unknown]
